FAERS Safety Report 5632074-4 (Version None)
Quarter: 2008Q1

REPORT INFORMATION
  Report Type: 
  Country: None (occurrence: None)
  Receive Date: 20080220
  Receipt Date: 20080213
  Transmission Date: 20080703
  Serious: Yes (Other)
  Sender: FDA-Public Use
  Company Number: A0710578A

PATIENT
  Age: 62 Year
  Sex: Male

DRUGS (5)
  1. ADVAIR DISKUS 100/50 [Suspect]
     Indication: DRUG USE FOR UNKNOWN INDICATION
     Route: 055
  2. CAPTOPRIL [Concomitant]
  3. HUMULIN N [Concomitant]
  4. INSULIN [Concomitant]
  5. UNKNOWN [Concomitant]

REACTIONS (1)
  - PSORIASIS [None]
